FAERS Safety Report 5509517-X (Version None)
Quarter: 2007Q4

REPORT INFORMATION
  Report Type: 
  Country: None (occurrence: None)
  Receive Date: 20071107
  Receipt Date: 20071026
  Transmission Date: 20080405
  Serious: Yes (Other)
  Sender: FDA-Public Use
  Company Number: GB-PFIZER INC-2007091400

PATIENT
  Sex: Female

DRUGS (1)
  1. SALAZOPRIN [Suspect]
     Indication: RHEUMATOID ARTHRITIS

REACTIONS (1)
  - COLITIS ULCERATIVE [None]
